FAERS Safety Report 4635299-X (Version None)
Quarter: 2005Q2

REPORT INFORMATION
  Report Type: 
  Country: None (occurrence: None)
  Receive Date: 20050411
  Receipt Date: 20050401
  Transmission Date: 20051028
  Serious: Yes (Hospitalization, Other)
  Sender: FDA-Public Use
  Company Number: KII-2005-0015736

PATIENT
  Age: 58 Year
  Sex: Male

DRUGS (1)
  1. MORPHINE SULFATE [Suspect]
     Indication: DRUG USE FOR UNKNOWN INDICATION
     Dosage: ORAL
     Route: 048

REACTIONS (9)
  - ACIDOSIS [None]
  - BLOOD POTASSIUM INCREASED [None]
  - BLOOD PRESSURE SYSTOLIC DECREASED [None]
  - DRUG ABUSER [None]
  - EYE ROLLING [None]
  - LETHARGY [None]
  - MIOSIS [None]
  - OVERDOSE [None]
  - RENAL FAILURE [None]
